FAERS Safety Report 17599059 (Version 1)
Quarter: 2020Q1

REPORT INFORMATION
  Report Type: Spontaneous
  Country: ID (occurrence: ID)
  Receive Date: 20200330
  Receipt Date: 20200330
  Transmission Date: 20200409
  Serious: Yes (Death, Hospitalization)
  Sender: FDA-Public Use
  Company Number: NVSC2020ID084496

PATIENT
  Sex: Male

DRUGS (7)
  1. ANTASIDA [Concomitant]
     Indication: PRODUCT USED FOR UNKNOWN INDICATION
     Dosage: 1 DF, BID
     Route: 065
     Dates: start: 20200314
  2. FLUIMUCIL [Concomitant]
     Active Substance: ACETYLCYSTEINE
     Indication: PRODUCT USED FOR UNKNOWN INDICATION
     Dosage: 400 MG, TID
     Route: 065
  3. LEVOFLOXACIN. [Concomitant]
     Active Substance: LEVOFLOXACIN
     Indication: PRODUCT USED FOR UNKNOWN INDICATION
     Dosage: 500 MG, QD
     Route: 065
  4. ABBOTIC [Concomitant]
     Indication: PHARYNGITIS
     Dosage: 1 DF, QD
     Route: 065
     Dates: start: 20200313
  5. SHAROX [Concomitant]
     Indication: PRODUCT USED FOR UNKNOWN INDICATION
     Dosage: 500 MG, BID
     Route: 065
  6. CATAFLAM [Suspect]
     Active Substance: DICLOFENAC POTASSIUM
     Indication: PHARYNGITIS
     Dosage: 1 DF, TID
     Route: 065
     Dates: start: 20200313
  7. METHISOPRINOL [Concomitant]
     Indication: PRODUCT USED FOR UNKNOWN INDICATION
     Dosage: 500 MG 1 X 4 DAILY
     Route: 065

REACTIONS (9)
  - Haemoptysis [Fatal]
  - Lymphopenia [Fatal]
  - Pneumonia [Unknown]
  - Cough [Unknown]
  - Pyrexia [Fatal]
  - Chest pain [Fatal]
  - Lung disorder [Fatal]
  - Dyspnoea [Fatal]
  - Influenza [Fatal]

NARRATIVE: CASE EVENT DATE: 20200314
